FAERS Safety Report 4685184-2 (Version None)
Quarter: 2005Q2

REPORT INFORMATION
  Report Type: 
  Country: None (occurrence: None)
  Receive Date: 20050603
  Receipt Date: 20050525
  Transmission Date: 20051028
  Serious: Yes (Hospitalization)
  Sender: FDA-Public Use
  Company Number: 2005074216

PATIENT
  Age: 35 Year
  Sex: Male

DRUGS (2)
  1. GEODON [Suspect]
     Indication: SCHIZOPHRENIA
     Dosage: 120 MG (60 MG, 2 IN 1 D) ORAL
     Route: 048
     Dates: start: 20050501
  2. GEODON [Suspect]
     Dosage: INTRAMUSCULAR
     Route: 030

REACTIONS (3)
  - ABNORMAL BEHAVIOUR [None]
  - ERECTION INCREASED [None]
  - EXCESSIVE MASTURBATION [None]
